FAERS Safety Report 4371562-8 (Version None)
Quarter: 2004Q2

REPORT INFORMATION
  Report Type: 
  Country: None (occurrence: None)
  Receive Date: 20040607
  Receipt Date: 20040526
  Transmission Date: 20050107
  Serious: Yes (Death)
  Sender: FDA-Public Use
  Company Number: US-JNJFOC-20040506347

PATIENT
  Sex: Female
  Weight: 61.69 kg

DRUGS (9)
  1. REMICADE [Suspect]
     Indication: RHEUMATOID ARTHRITIS
     Route: 042
     Dates: start: 20030331, end: 20030501
  2. METHOTREXATE [Concomitant]
  3. FOLIC ACID [Concomitant]
  4. ARTHROTEC [Concomitant]
  5. ARTHROTEC [Concomitant]
  6. NORVASC [Concomitant]
  7. TOPROL-XL [Concomitant]
  8. ALTACE [Concomitant]
  9. PLAVIX [Concomitant]

REACTIONS (2)
  - HEPATIC ENZYME INCREASED [None]
  - PANCREATIC CARCINOMA [None]
